FAERS Safety Report 10189579 (Version 2)
Quarter: 2014Q2

REPORT INFORMATION
  Report Type: Spontaneous
  Country: US (occurrence: US)
  Receive Date: 20140522
  Receipt Date: 20140619
  Transmission Date: 20141212
  Serious: Yes (Hospitalization, Other)
  Sender: FDA-Public Use
  Company Number: US-GLAXOSMITHKLINE-A1071955A

PATIENT
  Age: 69 Year
  Sex: Male
  Weight: 89.1 kg

DRUGS (3)
  1. PROMACTA [Suspect]
     Indication: IMMUNE THROMBOCYTOPENIC PURPURA
     Dosage: 50MG PER DAY
     Route: 065
  2. PREDNISONE [Concomitant]
  3. FAMOTIDINE [Concomitant]

REACTIONS (5)
  - Pulmonary thrombosis [Recovering/Resolving]
  - Nasal congestion [Recovering/Resolving]
  - Cough [Recovering/Resolving]
  - Headache [Recovering/Resolving]
  - Influenza like illness [Recovering/Resolving]
